FAERS Safety Report 4733438-3 (Version None)
Quarter: 2005Q3

REPORT INFORMATION
  Report Type: 
  Country: None (occurrence: None)
  Receive Date: 20050801
  Receipt Date: 20050721
  Transmission Date: 20060218
  Serious: Yes (Other)
  Sender: FDA-Public Use
  Company Number: FRWYE712602JUN05

PATIENT
  Age: 60 Year
  Sex: Male

DRUGS (7)
  1. EFFEXOR [Suspect]
     Indication: DEPRESSION
     Dosage: SEE IMAGE
     Route: 048
     Dates: start: 20050415, end: 20050501
  2. EFFEXOR [Suspect]
     Indication: DEPRESSION
     Dosage: SEE IMAGE
     Route: 048
     Dates: start: 20050502, end: 20050525
  3. EFFEXOR [Suspect]
     Indication: DEPRESSION
     Dosage: SEE IMAGE
     Route: 048
     Dates: start: 20050101
  4. PROTHIADEN [Suspect]
     Indication: DEPRESSION
     Dosage: 150 MG 1X PER 1 DAY, ORAL
     Route: 048
     Dates: end: 20050415
  5. CITALOPRAM HYDROBROMIDE [Suspect]
     Indication: DEPRESSION
     Dosage: 40 MG 1X PER 1 DAY, ORAL
     Route: 048
     Dates: end: 20050415
  6. XANAX [Concomitant]
  7. SULFARLEM (ANETHOLE TRITHIONE) [Concomitant]

REACTIONS (9)
  - DRUG INTERACTION [None]
  - DYSKINESIA [None]
  - FLIGHT OF IDEAS [None]
  - HYPOMANIA [None]
  - INSOMNIA [None]
  - IRRITABILITY [None]
  - PSYCHOMOTOR HYPERACTIVITY [None]
  - RESTLESSNESS [None]
  - SEROTONIN SYNDROME [None]
